FAERS Safety Report 16185650 (Version 2)
Quarter: 2020Q2

REPORT INFORMATION
  Report Type: Spontaneous
  Country: US (occurrence: US)
  Receive Date: 20190411
  Receipt Date: 20200409
  Transmission Date: 20200713
  Serious: Yes (Hospitalization)
  Sender: FDA-Public Use
  Company Number: US-VIFOR (INTERNATIONAL) INC.-VIT-2019-03165

PATIENT
  Age: 58 Year
  Sex: Male

DRUGS (5)
  1. FOSRENOL [Concomitant]
     Active Substance: LANTHANUM CARBONATE
  2. VELTASSA [Suspect]
     Active Substance: PATIROMER
     Indication: HYPERKALAEMIA
     Route: 048
  3. VELTASSA [Suspect]
     Active Substance: PATIROMER
  4. GABAPENTIN. [Concomitant]
     Active Substance: GABAPENTIN
  5. MIDODRINE HCL [Concomitant]
     Active Substance: MIDODRINE HYDROCHLORIDE

REACTIONS (2)
  - Hospitalisation [Unknown]
  - Off label use [Unknown]

NARRATIVE: CASE EVENT DATE: 20190327
